FAERS Safety Report 4777917-1 (Version None)
Quarter: 2005Q3

REPORT INFORMATION
  Report Type: 
  Country: None (occurrence: None)
  Receive Date: 20050921
  Receipt Date: 20050913
  Transmission Date: 20060218
  Serious: Yes (Death, Life-Threatening, Hospitalization)
  Sender: FDA-Public Use
  Company Number: 2005JP001535

PATIENT
  Age: 84 Year
  Sex: Female
  Weight: 52 kg

DRUGS (13)
  1. PROGRAF [Suspect]
     Indication: RHEUMATOID ARTHRITIS
     Dosage: SEE IMAGE
     Route: 048
     Dates: start: 20050715, end: 20050719
  2. PROGRAF [Suspect]
     Indication: RHEUMATOID ARTHRITIS
     Dosage: SEE IMAGE
     Route: 048
     Dates: start: 20050720, end: 20050721
  3. SOLU-MEDROL [Suspect]
     Indication: INTERSTITIAL LUNG DISEASE
     Dosage: 1000.00 MG, UID/QD, IV DRIP
     Route: 041
     Dates: start: 20050720, end: 20050722
  4. BAYASPIRIN TABLET [Concomitant]
  5. PREDNISOLONE [Concomitant]
  6. LASIX                    /SWE/ (FUROSEMIDE) [Concomitant]
  7. ROCALTROL                (CALCITRIOL) CAPSULE [Concomitant]
  8. OMEPRAZOLE [Concomitant]
  9. SENNOSIDE A                             (SENNOSIDE A) [Concomitant]
  10. SIGMART (NICORANDIL) TABLET [Concomitant]
  11. HERBRESSOR R                     (DILTIAZEM HDYROCHLORIDE) CAPSULE [Concomitant]
  12. SELOKEN   (METOPROLOL TARTRATE) TABLET [Concomitant]
  13. MAGNESIUM OXIDE (MAGNESIUM OXIDE) GRANULE [Concomitant]

REACTIONS (11)
  - CARDIAC DISORDER [None]
  - CONDITION AGGRAVATED [None]
  - DISSEMINATED INTRAVASCULAR COAGULATION [None]
  - DRUG INEFFECTIVE [None]
  - HEPATIC FAILURE [None]
  - INTERSTITIAL LUNG DISEASE [None]
  - LIVER DISORDER [None]
  - PANCREATITIS ACUTE [None]
  - RENAL FAILURE [None]
  - RHEUMATOID ARTHRITIS [None]
  - URINE OUTPUT DECREASED [None]
